FAERS Safety Report 15110913 (Version 1)
Quarter: 2018Q3

REPORT INFORMATION
  Report Type: Report from Study
  Country: US (occurrence: US)
  Receive Date: 20180705
  Receipt Date: 20180705
  Transmission Date: 20181010
  Serious: Yes (Hospitalization)
  Sender: FDA-Public Use
  Company Number: US-BAYER-2018-115939

PATIENT
  Age: 30 Year
  Sex: Female

DRUGS (2)
  1. ADEMPAS [Suspect]
     Active Substance: RIOCIGUAT
     Indication: PULMONARY ARTERIAL HYPERTENSION
     Dosage: 1 MG, TID
     Route: 048
     Dates: start: 20180620
  2. ADEMPAS [Suspect]
     Active Substance: RIOCIGUAT
     Indication: PULMONARY ARTERIAL HYPERTENSION
     Dosage: 0.5 MG, TID
     Route: 048
     Dates: start: 20180424

REACTIONS (11)
  - Pain in jaw [None]
  - Chest pain [None]
  - Cold sweat [None]
  - Nausea [None]
  - Heart rate increased [None]
  - Constipation [None]
  - Fatigue [None]
  - Tooth disorder [None]
  - Haematemesis [None]
  - Hypoxia [None]
  - Pneumonia [None]

NARRATIVE: CASE EVENT DATE: 20180605
